FAERS Safety Report 12694050 (Version 1)
Quarter: 2016Q3

REPORT INFORMATION
  Report Type: Spontaneous
  Country: US (occurrence: US)
  Receive Date: 20160829
  Receipt Date: 20160829
  Transmission Date: 20161109
  Serious: No
  Sender: FDA-Public Use
  Company Number: US-JNJFOC-20160808077

PATIENT
  Sex: Male

DRUGS (4)
  1. RISPERIDONE. [Concomitant]
     Active Substance: RISPERIDONE
     Indication: DRUG THERAPY
     Dosage: HALF TABLET TWICE DAILY
     Route: 065
     Dates: start: 2016
  2. RISPERIDONE. [Concomitant]
     Active Substance: RISPERIDONE
     Indication: AGGRESSION
     Dosage: HALF TABLET TWICE DAILY
     Route: 065
     Dates: start: 2016
  3. CONCERTA [Suspect]
     Active Substance: METHYLPHENIDATE HYDROCHLORIDE
     Indication: ATTENTION DEFICIT/HYPERACTIVITY DISORDER
     Route: 048
  4. GUANFACINE. [Concomitant]
     Active Substance: GUANFACINE
     Indication: ATTENTION DEFICIT/HYPERACTIVITY DISORDER
     Route: 065

REACTIONS (1)
  - Drug dose omission [Not Recovered/Not Resolved]
